FAERS Safety Report 6051072-2 (Version None)
Quarter: 2009Q1

REPORT INFORMATION
  Report Type: 
  Country: None (occurrence: None)
  Receive Date: 20090121
  Receipt Date: 20090108
  Transmission Date: 20090719
  Serious: Yes (Death, Hospitalization)
  Sender: FDA-Public Use
  Company Number: 2009PL000004

PATIENT
  Age: 85 Year
  Sex: Female

DRUGS (1)
  1. ALLOPURINOL [Suspect]
     Dosage: 300 MG;QD;

REACTIONS (5)
  - ACUTE MYOCARDIAL INFARCTION [None]
  - CONJUNCTIVITIS [None]
  - DRUG RASH WITH EOSINOPHILIA AND SYSTEMIC SYMPTOMS [None]
  - RENAL IMPAIRMENT [None]
  - TRANSAMINASES INCREASED [None]
